FAERS Safety Report 20496991 (Version 1)
Quarter: 2022Q1

REPORT INFORMATION
  Report Type: Spontaneous
  Country: DE (occurrence: DE)
  Receive Date: 20220221
  Receipt Date: 20220221
  Transmission Date: 20220424
  Serious: Yes (Hospitalization)
  Sender: FDA-Public Use
  Company Number: DE-DCGMA-21191802

PATIENT
  Age: 10 Year
  Sex: Female
  Weight: 38.4 kg

DRUGS (1)
  1. LISDEXAMFETAMINE DIMESYLATE [Suspect]
     Active Substance: LISDEXAMFETAMINE DIMESYLATE
     Indication: Product used for unknown indication
     Dosage: 60 MILLIGRAM
     Route: 048
     Dates: start: 20210626, end: 20210626

REACTIONS (8)
  - Sleep disorder [Recovered/Resolved]
  - Blood creatine phosphokinase increased [Recovered/Resolved]
  - Jaw disorder [Recovered/Resolved]
  - Electrocardiogram abnormal [Recovered/Resolved]
  - Intentional product misuse [Recovered/Resolved]
  - Mydriasis [Recovered/Resolved]
  - Logorrhoea [Recovered/Resolved]
  - Hallucination [Recovered/Resolved]

NARRATIVE: CASE EVENT DATE: 20210626
